FAERS Safety Report 8194092-4 (Version None)
Quarter: 2012Q1

REPORT INFORMATION
  Report Type: 
  Country: None (occurrence: None)
  Receive Date: 20120308
  Receipt Date: 20120228
  Transmission Date: 20120608
  Serious: Yes (Hospitalization, Disabling)
  Sender: FDA-Public Use
  Company Number: DE-ASTRAZENECA-2012SE10580

PATIENT
  Age: 45 Year
  Sex: Female
  Weight: 96 kg

DRUGS (34)
  1. ATACAND [Concomitant]
     Indication: RENAL FAILURE
     Dosage: 8, TWO TIMES DAILY
     Dates: start: 20060701
  2. JALRA [Concomitant]
     Indication: DIABETES MELLITUS
     Dosage: 50, UNKNOWN DOSE DAILY
     Dates: start: 20120214
  3. VIT B KOMPL [Concomitant]
     Indication: NEUROPATHY PERIPHERAL
     Dosage: UNKNOWN DOSE DAILY
     Dates: start: 20110601
  4. BISOPROLOL FUMARATE [Concomitant]
     Indication: RENAL FAILURE
     Dosage: 10, HALF DAILY
     Dates: start: 20060701
  5. THIAZIDE DIURETICS [Concomitant]
     Indication: RENAL FAILURE
  6. THYROID HORMONE [Concomitant]
     Indication: HYPOTHYROIDISM
  7. BENZODIAZEPINES [Concomitant]
     Indication: EXTRAPYRAMIDAL DISORDER
  8. SEROQUEL [Suspect]
     Route: 048
     Dates: start: 20110101, end: 20111101
  9. VALPROATE SODIUM [Concomitant]
     Indication: BIPOLAR I DISORDER
     Dosage: 1000, ONCE DAILY
     Dates: start: 20110201
  10. BAYMYCARD [Concomitant]
     Indication: RENAL FAILURE
     Dosage: 10, THREE TIMES A DAY
     Dates: start: 20060701
  11. SODIUM POLYSTYRENE SULFONATE [Concomitant]
     Indication: RENAL FAILURE
     Dosage: UNKNOWN DOSE TWO TIMES DAILY
     Dates: start: 20110601
  12. SEROQUEL [Suspect]
     Route: 048
     Dates: start: 20120219
  13. AKINETON [Concomitant]
     Indication: RESTLESS LEGS SYNDROME
  14. LORAZEPAM [Concomitant]
     Dosage: 0.5
  15. LIMPTAR N [Concomitant]
     Indication: MUSCLE SPASMS
     Dosage: UNKNOWN DOSE DAILY
     Dates: start: 20110601
  16. SEROQUEL [Suspect]
     Indication: BIPOLAR DISORDER
     Dosage: 300 MG GRADUALLY REDUCED TO 50 MG DAILY
     Route: 048
     Dates: start: 20050101, end: 20090101
  17. SEROQUEL [Suspect]
     Route: 048
     Dates: start: 20110101, end: 20111101
  18. SEROQUEL [Suspect]
     Route: 048
     Dates: start: 20111101, end: 20120218
  19. SEROQUEL [Suspect]
     Route: 048
     Dates: start: 20120219
  20. TORSEMIDE [Concomitant]
     Indication: RENAL FAILURE
     Dosage: 10, THRE TIMES A DAY
     Dates: start: 20060701
  21. BICANORM [Concomitant]
     Indication: RENAL FAILURE
     Dosage: UNKNOWN DOSE TWO TIMES A DAY
     Dates: start: 20060701
  22. ADENURIC [Concomitant]
     Indication: GOUT
     Dosage: UNKNOWN DOSE DAILY
     Dates: start: 20110901
  23. FOSRENOL [Concomitant]
     Indication: RENAL FAILURE
     Dosage: UNKNOWN DOSE TWO TIMES DAILY
     Dates: start: 20111101
  24. SEROQUEL [Suspect]
     Route: 048
     Dates: start: 20111101, end: 20120218
  25. PANTOPRAZOLE [Concomitant]
     Indication: GASTRITIS
     Dosage: 20, DAILY
     Dates: start: 20050101
  26. EINSALPHA [Concomitant]
     Indication: RENAL FAILURE
     Dosage: 0.25 U, UNKNOWN DOSE TWO TIMES DAILY
     Dates: start: 20060701
  27. ADENURIC [Concomitant]
     Indication: BLOOD URIC ACID INCREASED
     Dosage: UNKNOWN DOSE DAILY
     Dates: start: 20110901
  28. MILGAMMA PROTECT [Concomitant]
     Indication: NEUROPATHY PERIPHERAL
     Dosage: UNKNOWN DOSE DAILY
     Dates: start: 20110601
  29. SEROQUEL [Suspect]
     Indication: BIPOLAR I DISORDER
     Dosage: 300 MG GRADUALLY REDUCED TO 50 MG DAILY
     Route: 048
     Dates: start: 20050101, end: 20090101
  30. L-THYROX [Concomitant]
     Indication: HYPOTHYROIDISM
     Dosage: 50, UNKNOWN DOSE DAILY
     Dates: start: 20120215
  31. RIOPAN [Concomitant]
     Indication: GASTRITIS
     Dates: start: 20110601
  32. ALBUTEROL [Concomitant]
     Indication: TACHYCARDIA
  33. ANTI-CHOLINERGICS [Concomitant]
     Indication: EXTRAPYRAMIDAL DISORDER
  34. PROPRANOLOL [Concomitant]
     Indication: EXTRAPYRAMIDAL DISORDER

REACTIONS (10)
  - WEIGHT INCREASED [None]
  - RESTLESS LEGS SYNDROME [None]
  - EXTRAPYRAMIDAL DISORDER [None]
  - OBESITY [None]
  - FATIGUE [None]
  - HYPOTHYROIDISM [None]
  - DEPRESSION [None]
  - CONVULSION [None]
  - TYPE 2 DIABETES MELLITUS [None]
  - METABOLIC SYNDROME [None]
